FAERS Safety Report 5963818-X (Version None)
Quarter: 2008Q4

REPORT INFORMATION
  Report Type: 
  Country: None (occurrence: None)
  Receive Date: 20081121
  Receipt Date: 20081121
  Transmission Date: 20090506
  Serious: Yes (Life-Threatening, Other)
  Sender: FDA-Public Use
  Company Number: None

PATIENT
  Age: 86 Year
  Sex: Female

DRUGS (1)
  1. DIGOXIN [Suspect]
     Dosage: 0.25 MG PO DAILY
     Route: 048
     Dates: end: 20080718

REACTIONS (3)
  - HYPOXIA [None]
  - MENTAL STATUS CHANGES [None]
  - OXYGEN SATURATION DECREASED [None]
